FAERS Safety Report 17516387 (Version 4)
Quarter: 2020Q1

REPORT INFORMATION
  Report Type: Spontaneous
  Country: US (occurrence: US)
  Receive Date: 20200309
  Receipt Date: 20200326
  Transmission Date: 20200409
  Serious: No
  Sender: FDA-Public Use
  Company Number: US-PFIZER INC-2020077318

PATIENT
  Age: 72 Year
  Sex: Female
  Weight: 53.61 kg

DRUGS (1)
  1. PREMARIN [Suspect]
     Active Substance: ESTROGENS, CONJUGATED
     Dosage: 0.5 G, 2X/WEEK (AT BEDTIME)
     Route: 067

REACTIONS (2)
  - Product prescribing error [Unknown]
  - Product use issue [Unknown]
